FAERS Safety Report 17236737 (Version 1)
Quarter: 2020Q1

REPORT INFORMATION
  Report Type: Spontaneous
  Country: US (occurrence: US)
  Receive Date: 20200106
  Receipt Date: 20200106
  Transmission Date: 20200409
  Serious: No
  Sender: FDA-Public Use
  Company Number: US-SHIRE-US201945249

PATIENT
  Age: 78 Year
  Sex: Female

DRUGS (1)
  1. XIIDRA [Suspect]
     Active Substance: LIFITEGRAST
     Indication: DRY EYE
     Dosage: ONE DROP 2X/DAY:BID
     Route: 047
     Dates: start: 20191217, end: 20191223

REACTIONS (2)
  - Product container issue [Unknown]
  - Instillation site pain [Unknown]

NARRATIVE: CASE EVENT DATE: 20191217
